FAERS Safety Report 8269418-3 (Version None)
Quarter: 2012Q2

REPORT INFORMATION
  Report Type: 
  Country: None (occurrence: None)
  Receive Date: 20120409
  Receipt Date: 20120222
  Transmission Date: 20120825
  Serious: Yes (Other)
  Sender: FDA-Public Use
  Company Number: US-ASTRAZENECA-2012SE12145

PATIENT
  Sex: Male

DRUGS (4)
  1. BRILINTA [Suspect]
     Dosage: 180 MG IN THE MORNING, 90 MG IN THE EVENING
     Route: 048
     Dates: start: 20120218, end: 20120218
  2. BRILINTA [Suspect]
     Route: 048
  3. LOVENOX [Concomitant]
  4. ASPIRIN [Concomitant]

REACTIONS (1)
  - POST PROCEDURAL HAEMORRHAGE [None]
